FAERS Safety Report 24826028 (Version 5)
Quarter: 2025Q3

REPORT INFORMATION
  Report Type: Spontaneous
  Country: US (occurrence: US)
  Receive Date: 20250109
  Receipt Date: 20250929
  Transmission Date: 20251021
  Serious: No
  Sender: BRISTOL-MYERS SQUIBB COMPANY
  Company Number: US-BRISTOL-MYERS SQUIBB COMPANY-2025-003343

PATIENT
  Age: 78 Year
  Sex: Female

DRUGS (4)
  1. POMALYST [Suspect]
     Active Substance: POMALIDOMIDE
     Indication: Plasma cell myeloma
     Dosage: PATIENT TOOK POMALYST ON WEEKS 1 AND 2 OF CYCLE INSTEAD OF WEEKS 1 AND 3
  2. POMALYST [Suspect]
     Active Substance: POMALIDOMIDE
  3. POMALYST [Suspect]
     Active Substance: POMALIDOMIDE
  4. POMALYST [Suspect]
     Active Substance: POMALIDOMIDE

REACTIONS (5)
  - Inappropriate schedule of product administration [Unknown]
  - Diarrhoea [Unknown]
  - Cellulitis [Unknown]
  - White blood cell count decreased [Unknown]
  - Hypertonic bladder [Unknown]
